FAERS Safety Report 6301543-6 (Version None)
Quarter: 2009Q3

REPORT INFORMATION
  Report Type: 
  Country: None (occurrence: None)
  Receive Date: 20090805
  Receipt Date: 20090803
  Transmission Date: 20100115
  Serious: Yes (Hospitalization)
  Sender: FDA-Public Use
  Company Number: 2009SP004290

PATIENT
  Age: 55 Year
  Sex: Female
  Weight: 55 kg

DRUGS (7)
  1. PEG-INTRON [Suspect]
     Indication: HEPATITIS C
     Dosage: 80 MCG; QW; SC, 100 MCG; QW; SC
     Route: 058
     Dates: start: 20080607, end: 20090110
  2. PEG-INTRON [Suspect]
     Indication: HEPATITIS C
     Dosage: 80 MCG; QW; SC, 100 MCG; QW; SC
     Route: 058
     Dates: start: 20090117, end: 20090221
  3. REBETOL [Suspect]
     Indication: HEPATITIS C
     Dosage: 600 MG; QD; PO;  400 MG; QD; PO,600MG,QD,PO
     Route: 048
     Dates: start: 20080607, end: 20080627
  4. REBETOL [Suspect]
     Indication: HEPATITIS C
     Dosage: 600 MG; QD; PO;  400 MG; QD; PO,600MG,QD,PO
     Route: 048
     Dates: start: 20080628, end: 20090213
  5. REBETOL [Suspect]
     Indication: HEPATITIS C
     Dosage: 600 MG; QD; PO;  400 MG; QD; PO,600MG,QD,PO
     Route: 048
     Dates: start: 20090213, end: 20090224
  6. MUCOSTA [Concomitant]
  7. MOHRUS [Concomitant]

REACTIONS (3)
  - IMPAIRED DRIVING ABILITY [None]
  - RETINAL DETACHMENT [None]
  - VISUAL IMPAIRMENT [None]
